FAERS Safety Report 22176676 (Version 1)
Quarter: 2023Q2

REPORT INFORMATION
  Report Type: Spontaneous
  Country: US (occurrence: US)
  Receive Date: 20230405
  Receipt Date: 20230405
  Transmission Date: 20230721
  Serious: No
  Sender: FDA-Public Use
  Company Number: US-SA-SAC20230404000419

PATIENT
  Age: 59 Year
  Sex: Female

DRUGS (2)
  1. NEXVIAZYME [Suspect]
     Active Substance: AVALGLUCOSIDASE ALFA-NGPT
     Indication: Glycogen storage disease type II
     Dosage: 1700MG, QOW
     Route: 042
     Dates: start: 202302
  2. PREDNISONE [Concomitant]
     Active Substance: PREDNISONE

REACTIONS (1)
  - Diarrhoea [Unknown]
